FAERS Safety Report 17807268 (Version 1)
Quarter: 2020Q2

REPORT INFORMATION
  Report Type: Spontaneous
  Country: FR (occurrence: FR)
  Receive Date: 20200520
  Receipt Date: 20200520
  Transmission Date: 20200714
  Serious: Yes (Hospitalization)
  Sender: FDA-Public Use
  Company Number: FR-TEVA-2020-FR-1237233

PATIENT
  Age: 37 Year
  Sex: Female
  Weight: 123 kg

DRUGS (1)
  1. METHOTREXATE. [Suspect]
     Active Substance: METHOTREXATE
     Indication: ABORTION INDUCED
     Dosage: 180 MG
     Route: 030
     Dates: start: 20200406, end: 20200406

REACTIONS (6)
  - Pancytopenia [Not Recovered/Not Resolved]
  - Palmar-plantar erythrodysaesthesia syndrome [Not Recovered/Not Resolved]
  - Cholestasis [Not Recovered/Not Resolved]
  - Rash [Not Recovered/Not Resolved]
  - Mucosal erosion [Not Recovered/Not Resolved]
  - Tongue oedema [Not Recovered/Not Resolved]

NARRATIVE: CASE EVENT DATE: 20200406
